FAERS Safety Report 16122831 (Version 1)
Quarter: 2019Q1

REPORT INFORMATION
  Report Type: Spontaneous
  Country: US (occurrence: US)
  Receive Date: 20190327
  Receipt Date: 20190327
  Transmission Date: 20190418
  Serious: No
  Sender: FDA-Public Use
  Company Number: US-TEVA-2019-US-1018903

PATIENT
  Age: 84 Year
  Sex: Male

DRUGS (1)
  1. CLOTRIMAZOLE/BMD [Suspect]
     Active Substance: BETAMETHASONE DIPROPIONATE\CLOTRIMAZOLE
     Indication: FUNGAL INFECTION
     Dosage: DOSE STRENGTH:  CLOTRIMAZOLE 1%/BMD 0.05%
     Route: 065
     Dates: start: 20190102

REACTIONS (4)
  - Drug effect incomplete [Unknown]
  - Skin weeping [Unknown]
  - Product prescribing error [Unknown]
  - Product use in unapproved indication [Unknown]

NARRATIVE: CASE EVENT DATE: 201901
